FAERS Safety Report 6993468-8 (Version None)
Quarter: 2010Q3

REPORT INFORMATION
  Report Type: 
  Country: None (occurrence: None)
  Receive Date: 20100917
  Receipt Date: 20100512
  Transmission Date: 20110219
  Serious: Yes (Other)
  Sender: FDA-Public Use
  Company Number: US-ASTRAZENECA-2010SE22042

PATIENT
  Sex: Male

DRUGS (1)
  1. SEROQUEL [Suspect]
     Route: 048

REACTIONS (6)
  - DRUG DOSE OMISSION [None]
  - FEELING ABNORMAL [None]
  - HALLUCINATIONS, MIXED [None]
  - HEADACHE [None]
  - SLEEP DISORDER [None]
  - SUICIDAL IDEATION [None]
